FAERS Safety Report 4639746-9 (Version None)
Quarter: 2005Q2

REPORT INFORMATION
  Report Type: 
  Country: None (occurrence: None)
  Receive Date: 20050328
  Receipt Date: 20050122
  Transmission Date: 20051028
  Serious: No
  Sender: FDA-Public Use
  Company Number: USA050189224

PATIENT
  Age: 10 Year
  Sex: Male
  Weight: 28 kg

DRUGS (4)
  1. STRATTERA [Suspect]
     Indication: ATTENTION DEFICIT/HYPERACTIVITY DISORDER
     Dosage: 28 MG DAY
     Dates: start: 20030901
  2. ADDERALL 10 [Concomitant]
  3. CELEXA [Concomitant]
  4. VITAMINS [Concomitant]

REACTIONS (5)
  - CHANGE IN SUSTAINED ATTENTION [None]
  - HEART RATE INCREASED [None]
  - HYPERHIDROSIS [None]
  - PSYCHOMOTOR HYPERACTIVITY [None]
  - SOMNOLENCE [None]
